FAERS Safety Report 4512383-2 (Version None)
Quarter: 2004Q4

REPORT INFORMATION
  Report Type: 
  Country: None (occurrence: None)
  Receive Date: 20041123
  Receipt Date: 20041107
  Transmission Date: 20050328
  Serious: Yes (Hospitalization)
  Sender: FDA-Public Use
  Company Number: K200401747

PATIENT
  Age: 16 Year
  Sex: Female

DRUGS (1)
  1. METHIMAZOLE [Suspect]
     Indication: BASEDOW'S DISEASE
     Dosage: 30 MG, QD

REACTIONS (26)
  - AUTOIMMUNE DISORDER [None]
  - BONE MARROW DEPRESSION [None]
  - CARDIAC MURMUR [None]
  - DYSPHAGIA [None]
  - EXOPHTHALMOS [None]
  - HAEMOGLOBIN DECREASED [None]
  - HYPERTHYROIDISM [None]
  - HYPERVENTILATION [None]
  - LUNG DISORDER [None]
  - LYMPH NODE PAIN [None]
  - LYMPHADENOPATHY [None]
  - MENORRHAGIA [None]
  - NEUTROPHIL COUNT DECREASED [None]
  - PHARYNGOLARYNGEAL PAIN [None]
  - PROTEINURIA [None]
  - PROTHROMBIN TIME PROLONGED [None]
  - PYREXIA [None]
  - RED BLOOD CELL SEDIMENTATION RATE INCREASED [None]
  - TACHYCARDIA [None]
  - TACHYPNOEA [None]
  - THROMBOCYTOPENIA [None]
  - TONSILLAR DISORDER [None]
  - TONSILLITIS [None]
  - VAGINAL HAEMORRHAGE [None]
  - WEIGHT DECREASED [None]
  - WHITE BLOOD CELL COUNT DECREASED [None]
